FAERS Safety Report 4494087-8 (Version None)
Quarter: 2004Q4

REPORT INFORMATION
  Report Type: 
  Country: None (occurrence: None)
  Receive Date: 20041105
  Receipt Date: 20041013
  Transmission Date: 20050328
  Serious: Yes (Life-Threatening, Hospitalization, Disabling)
  Sender: FDA-Public Use
  Company Number: US-MERCK-0410USA02109

PATIENT
  Age: 67 Year
  Sex: Male

DRUGS (10)
  1. VIOXX [Suspect]
     Indication: ARTHRITIS
     Route: 048
     Dates: start: 20010101
  2. [THERAPY UNSPECIFIED] [Concomitant]
     Route: 065
  3. METFORMIN [Concomitant]
     Route: 065
  4. [THERAPY UNSPECIFIED] [Concomitant]
     Route: 065
  5. [THERAPY UNSPECIFIED] [Concomitant]
     Route: 065
  6. ZOCOR [Concomitant]
     Route: 065
  7. FLOMAX [Concomitant]
     Route: 065
  8. ASPIRIN [Concomitant]
     Route: 065
  9. TRUSOPT [Concomitant]
     Route: 065
  10. VICODIN [Concomitant]
     Route: 065

REACTIONS (4)
  - CHEST PAIN [None]
  - FATIGUE [None]
  - GASTRIC HAEMORRHAGE [None]
  - OESOPHAGEAL ULCER [None]
